FAERS Safety Report 9523963 (Version 1)
Quarter: 2013Q3

REPORT INFORMATION
  Report Type: Spontaneous
  Country: ES (occurrence: None)
  Receive Date: 20130912
  Receipt Date: 20130912
  Transmission Date: 20140515
  Serious: Yes (Other)
  Sender: FDA-Public Use
  Company Number: ADR-2013-01592

PATIENT
  Age: 74 Year
  Sex: Male

DRUGS (10)
  1. BACLOFEN INTRATHECAL [Suspect]
     Indication: MUSCLE SPASTICITY
     Dosage: 55MCG/DAY
     Dates: start: 20121105, end: 20121119
  2. PHYSIOTHERAPY (NO INGREDIENTS/SUBSTANCES0 [Concomitant]
  3. TROMALYT (ACETYLSALICYLIC ACID) [Concomitant]
  4. CHLORTALIDONE (CHLORTALIDONE) [Concomitant]
  5. GABAPENTINA (GABAPENTIN) [Concomitant]
  6. DURAGESIC (FENTANYL) [Concomitant]
  7. OMNIC OCAS (TAMSULOSIN HYDROCHLORIDE) [Concomitant]
  8. NUCLOSINA (OMEPRAZOLE) [Concomitant]
  9. ENANGEL (DEXKETOPROFEN TROMETAMOL) [Concomitant]
  10. PARACETAMOL (PARACETAMOL) [Concomitant]

REACTIONS (1)
  - Atrial fibrillation [None]
